FAERS Safety Report 4465008-9 (Version None)
Quarter: 2004Q4

REPORT INFORMATION
  Report Type: 
  Country: None (occurrence: None)
  Receive Date: 20041004
  Receipt Date: 20040616
  Transmission Date: 20050328
  Serious: No
  Sender: FDA-Public Use
  Company Number: 374024

PATIENT
  Age: 75 Year
  Sex: Male

DRUGS (3)
  1. COREG [Suspect]
     Dosage: 3.125MG TWICE PER DAY
     Route: 048
     Dates: start: 20040301, end: 20040527
  2. NEXIUM [Concomitant]
  3. ASPIRIN [Concomitant]

REACTIONS (2)
  - PRURITUS [None]
  - URTICARIA [None]
